FAERS Safety Report 5810402-4 (Version None)
Quarter: 2008Q3

REPORT INFORMATION
  Report Type: 
  Country: None (occurrence: None)
  Receive Date: 20080715
  Receipt Date: 20080703
  Transmission Date: 20090109
  Serious: Yes (Other)
  Sender: FDA-Public Use
  Company Number: BR-PFIZER INC-2005057556

PATIENT
  Sex: Female

DRUGS (2)
  1. BEXTRA [Suspect]
     Indication: ANALGESIA
     Route: 048
  2. NALDECOL [Concomitant]
     Route: 048

REACTIONS (9)
  - BALANCE DISORDER [None]
  - DRUG INEFFECTIVE [None]
  - FOOT DEFORMITY [None]
  - HEADACHE [None]
  - HOT FLUSH [None]
  - INFARCTION [None]
  - RASH [None]
  - VULVOVAGINAL PRURITUS [None]
  - WOUND [None]
